FAERS Safety Report 7629164-3 (Version None)
Quarter: 2011Q3

REPORT INFORMATION
  Report Type: 
  Country: None (occurrence: None)
  Receive Date: 20110722
  Receipt Date: 20110711
  Transmission Date: 20111222
  Serious: Yes (Hospitalization)
  Sender: FDA-Public Use
  Company Number: PHHY2011AU63934

PATIENT
  Sex: Female

DRUGS (1)
  1. CLOZAPINE [Suspect]
     Dates: start: 20100503

REACTIONS (2)
  - ABNORMAL BEHAVIOUR [None]
  - PSYCHOTIC DISORDER [None]
